FAERS Safety Report 23875684 (Version 1)
Quarter: 2024Q2

REPORT INFORMATION
  Report Type: Spontaneous
  Country: US (occurrence: US)
  Receive Date: 20240520
  Receipt Date: 20240520
  Transmission Date: 20240716
  Serious: No
  Sender: FDA-Public Use
  Company Number: US-MYLANLABS-2024M1040440

PATIENT

DRUGS (1)
  1. LIDOCAINE PATCH [Suspect]
     Active Substance: LIDOCAINE
     Indication: Pain
     Dosage: 5 PERCENT (FOR A 12 HOUR PERIOD)
     Route: 062

REACTIONS (4)
  - Therapeutic response decreased [Unknown]
  - Expired product administered [Unknown]
  - Product substitution issue [Unknown]
  - Product adhesion issue [Unknown]
